FAERS Safety Report 4865699-4 (Version None)
Quarter: 2005Q4

REPORT INFORMATION
  Report Type: 
  Country: None (occurrence: None)
  Receive Date: 20051220
  Receipt Date: 20040817
  Transmission Date: 20060501
  Serious: Yes (Death)
  Sender: FDA-Public Use
  Company Number: FLX20050014

PATIENT
  Age: 44 Year
  Sex: Male

DRUGS (3)
  1. FLUOXETINE [Suspect]
     Indication: ANTIDEPRESSANT THERAPY
     Dosage: 40 MG PO
     Route: 048
     Dates: start: 20010830
  2. WELLBUTRIN [Concomitant]
  3. PROZAC [Concomitant]

REACTIONS (6)
  - COMPLETED SUICIDE [None]
  - DRUG LEVEL INCREASED [None]
  - EXTRAPYRAMIDAL DISORDER [None]
  - HALLUCINATION, AUDITORY [None]
  - NERVOUS SYSTEM DISORDER [None]
  - TREMOR [None]
